FAERS Safety Report 6918760-4 (Version None)
Quarter: 2010Q3

REPORT INFORMATION
  Report Type: 
  Country: None (occurrence: None)
  Receive Date: 20100811
  Receipt Date: 20100806
  Transmission Date: 20110219
  Serious: Yes (Hospitalization)
  Sender: FDA-Public Use
  Company Number: US-RB-008534-10

PATIENT
  Age: 35 Year
  Sex: Male

DRUGS (2)
  1. SUBOXONE [Suspect]
     Indication: DRUG DEPENDENCE
     Route: 060
     Dates: start: 20100401
  2. ALCOHOL [Suspect]
     Indication: PRODUCT USED FOR UNKNOWN INDICATION
     Dosage: UNKNOWN DOSING DETAILS
     Route: 065

REACTIONS (15)
  - ANXIETY [None]
  - ARTHRALGIA [None]
  - BACK PAIN [None]
  - CARDIAC ARREST [None]
  - DEPRESSED MOOD [None]
  - DEPRESSION [None]
  - DRUG WITHDRAWAL SYNDROME [None]
  - HEADACHE [None]
  - HYPERHIDROSIS [None]
  - NECK PAIN [None]
  - OVERDOSE [None]
  - PAIN IN EXTREMITY [None]
  - PNEUMONIA [None]
  - RHINORRHOEA [None]
  - SUICIDE ATTEMPT [None]
